FAERS Safety Report 7231783-3 (Version None)
Quarter: 2011Q1

REPORT INFORMATION
  Report Type: 
  Country: None (occurrence: None)
  Receive Date: 20110118
  Receipt Date: 20110110
  Transmission Date: 20110831
  Serious: Yes (Hospitalization)
  Sender: FDA-Public Use
  Company Number: BR-ASTRAZENECA-2011SE01866

PATIENT
  Age: 59 Year
  Sex: Female
  Weight: 50 kg

DRUGS (5)
  1. SELOZOK [Suspect]
     Route: 048
     Dates: start: 20050101
  2. RIVOTRIL [Concomitant]
     Route: 048
     Dates: start: 20050101
  3. LIPITOR [Concomitant]
     Route: 048
     Dates: start: 20050101, end: 20060101
  4. ASA [Concomitant]
     Route: 048
     Dates: start: 20050101
  5. ENALAPRIL [Concomitant]
     Route: 048
     Dates: start: 20050101

REACTIONS (2)
  - VENOUS OCCLUSION [None]
  - CHEST PAIN [None]
